FAERS Safety Report 9130374 (Version 1)
Quarter: 2013Q1

REPORT INFORMATION
  Report Type: Spontaneous
  Country: US (occurrence: US)
  Receive Date: 20130228
  Receipt Date: 20130228
  Transmission Date: 20140127
  Serious: No
  Sender: FDA-Public Use
  Company Number: US-PFIZER INC-2013068151

PATIENT
  Age: 61 Year
  Sex: Female
  Weight: 77.1 kg

DRUGS (4)
  1. LIPITOR [Suspect]
     Indication: BLOOD CHOLESTEROL INCREASED
     Dosage: 20 MG, 1X/DAY
     Route: 048
     Dates: end: 201302
  2. SYNTHROID [Concomitant]
     Dosage: UNK
  3. VERAPAMIL [Concomitant]
     Dosage: UNK
  4. FISH OIL [Concomitant]
     Dosage: UNK

REACTIONS (1)
  - Malaise [Unknown]
